FAERS Safety Report 5820131-9 (Version None)
Quarter: 2008Q3

REPORT INFORMATION
  Report Type: 
  Country: None (occurrence: None)
  Receive Date: 20080724
  Receipt Date: 20080710
  Transmission Date: 20090109
  Serious: Yes (Other)
  Sender: FDA-Public Use
  Company Number: PHBS2008NL05096

PATIENT
  Age: 44 Year
  Sex: Female
  Weight: 89 kg

DRUGS (4)
  1. SANDOSTATIN [Suspect]
     Indication: ACROMEGALY
     Dosage: 0.1 MG, BID
     Route: 058
  2. SANDOSTATIN [Suspect]
     Dosage: 0.1 MG, TID
     Route: 058
  3. LEVOTHYROXINE SODIUM [Concomitant]
  4. HYDROCORTISONE [Concomitant]

REACTIONS (2)
  - HEADACHE [None]
  - SOMNOLENCE [None]
